FAERS Safety Report 6165271-2 (Version None)
Quarter: 2009Q2

REPORT INFORMATION
  Report Type: 
  Country: None (occurrence: None)
  Receive Date: 20090423
  Receipt Date: 20090417
  Transmission Date: 20091009
  Serious: Yes (Hospitalization)
  Sender: FDA-Public Use
  Company Number: A0779975A

PATIENT
  Age: 57 Year
  Sex: Female
  Weight: 95.5 kg

DRUGS (8)
  1. AVANDIA [Suspect]
     Dosage: 8MG PER DAY
     Route: 048
     Dates: start: 20000101, end: 20030101
  2. GLUCOPHAGE [Concomitant]
  3. ATENOLOL [Concomitant]
  4. TOPROL-XL [Concomitant]
  5. PRAVASTATIN [Concomitant]
  6. ALTOCOR [Concomitant]
  7. DIOVAN [Concomitant]
  8. CLONIDINE [Concomitant]

REACTIONS (1)
  - CEREBROVASCULAR ACCIDENT [None]
